FAERS Safety Report 22651571 (Version 1)
Quarter: 2023Q2

REPORT INFORMATION
  Report Type: Spontaneous
  Country: US (occurrence: US)
  Receive Date: 20230628
  Receipt Date: 20230628
  Transmission Date: 20230721
  Serious: No
  Sender: FDA-Public Use
  Company Number: US-CTI BIOPHARMA-2023US03440

PATIENT

DRUGS (10)
  1. VONJO [Suspect]
     Active Substance: PACRITINIB
     Indication: Myelofibrosis
     Dosage: 200 MG, BID
     Route: 048
     Dates: start: 20221216
  2. FERROUS SULFATE [Concomitant]
     Active Substance: FERROUS SULFATE
  3. HERBALS\TURMERIC [Concomitant]
     Active Substance: HERBALS\TURMERIC
  4. NYSTATIN [Concomitant]
     Active Substance: NYSTATIN
  5. IMITREX [Concomitant]
     Active Substance: SUMATRIPTAN SUCCINATE
  6. VITAMIN D3 [Concomitant]
     Active Substance: CHOLECALCIFEROL
  7. VITAMINS NOS [Concomitant]
     Active Substance: VITAMINS
  8. COENZYME Q10 [Concomitant]
     Active Substance: DIETARY SUPPLEMENT\UBIDECARENONE
  9. MIRALAX [Concomitant]
     Active Substance: POLYETHYLENE GLYCOL 3350
  10. ZOMETA [Concomitant]
     Active Substance: ZOLEDRONIC ACID

REACTIONS (1)
  - Product dose omission issue [Unknown]
